FAERS Safety Report 8112491-3 (Version None)
Quarter: 2012Q1

REPORT INFORMATION
  Report Type: 
  Country: None (occurrence: None)
  Receive Date: 20120203
  Receipt Date: 20120126
  Transmission Date: 20120608
  Serious: Yes (Other)
  Sender: FDA-Public Use
  Company Number: GB-JNJFOC-20120113459

PATIENT
  Sex: Female

DRUGS (2)
  1. STELARA [Suspect]
     Route: 058
  2. STELARA [Suspect]
     Indication: PRODUCT USED FOR UNKNOWN INDICATION
     Route: 058
     Dates: start: 20111229

REACTIONS (5)
  - POLYDIPSIA [None]
  - DRY MOUTH [None]
  - NASAL CONGESTION [None]
  - GLOSSODYNIA [None]
  - MUSCULOSKELETAL PAIN [None]
